FAERS Safety Report 9312262 (Version 3)
Quarter: 2014Q2

REPORT INFORMATION
  Report Type: Spontaneous
  Country: US (occurrence: US)
  Receive Date: 20130528
  Receipt Date: 20140521
  Transmission Date: 20141212
  Serious: Yes (Hospitalization, Other)
  Sender: FDA-Public Use
  Company Number: US-BAYER-2013-062668

PATIENT
  Age: 20 Year
  Sex: Female

DRUGS (3)
  1. MIRENA [Suspect]
     Indication: CONTRACEPTION
     Dosage: 20 MCG/24HR, CONT
     Dates: start: 20060731, end: 20100518
  2. MIRENA [Suspect]
     Indication: CONTRACEPTION
     Dosage: 20 MCG/24HR, CONT
     Route: 015
     Dates: start: 200610, end: 20080627
  3. CEFATIN [Concomitant]

REACTIONS (11)
  - Uterine perforation [None]
  - Device dislocation [None]
  - Device use error [None]
  - Infertility [None]
  - Injury [None]
  - Pain [None]
  - Emotional distress [None]
  - Internal injury [None]
  - Depression [None]
  - Anxiety [None]
  - Device issue [None]
